FAERS Safety Report 10057087 (Version 1)
Quarter: 2014Q2

REPORT INFORMATION
  Report Type: Spontaneous
  Country: CH (occurrence: CH)
  Receive Date: 20140403
  Receipt Date: 20140403
  Transmission Date: 20141212
  Serious: Yes (Hospitalization)
  Sender: FDA-Public Use
  Company Number: CH-BAYER-2014-046253

PATIENT
  Age: 85 Year
  Sex: Male

DRUGS (5)
  1. ASPIRIN CARDIO 300 [Suspect]
     Dosage: 100 MG, QD
     Route: 048
     Dates: start: 201308, end: 20140221
  2. SERTRALINE [Suspect]
     Dosage: 75 MG, QD
     Route: 048
  3. REMERON [Concomitant]
     Dosage: 30 MG, QD
  4. VANAIR [Concomitant]
     Dosage: 1 DF, BID
     Route: 055
  5. PLAVIX [Concomitant]

REACTIONS (3)
  - Subdural haematoma [Not Recovered/Not Resolved]
  - Speech disorder [Recovered/Resolved]
  - Coordination abnormal [Recovered/Resolved]
